FAERS Safety Report 4899457-1 (Version None)
Quarter: 2006Q1

REPORT INFORMATION
  Report Type: 
  Country: None (occurrence: None)
  Receive Date: 20060118
  Receipt Date: 20050711
  Transmission Date: 20060701
  Serious: No
  Sender: FDA-Public Use
  Company Number: 2005001308

PATIENT
  Age: 54 Year
  Sex: Female

DRUGS (5)
  1. TARCEVA [Suspect]
     Indication: NON-SMALL CELL LUNG CANCER
     Dosage: 150 MG (QD), ORAL
     Route: 048
     Dates: start: 20050420, end: 20050624
  2. TENORMIN [Concomitant]
  3. LORTAB [Concomitant]
  4. MS CONTIN [Concomitant]
  5. MEGACE [Concomitant]

REACTIONS (2)
  - BLOOD CREATININE INCREASED [None]
  - BLOOD UREA INCREASED [None]
